FAERS Safety Report 9575367 (Version 1)
Quarter: 2013Q4

REPORT INFORMATION
  Report Type: Spontaneous
  Country: US (occurrence: US)
  Receive Date: 20131001
  Receipt Date: 20131001
  Transmission Date: 20140711
  Serious: No
  Sender: FDA-Public Use
  Company Number: US-AMGEN-USASP2013001897

PATIENT
  Sex: Female
  Weight: 58.96 kg

DRUGS (6)
  1. ENBREL [Suspect]
     Indication: PRODUCT USED FOR UNKNOWN INDICATION
     Dosage: 50 MG, QWK
     Route: 058
  2. LORATADINE [Concomitant]
     Dosage: 10 MG, UNK
  3. LISINOPRIL [Concomitant]
     Dosage: 10 MG, UNK
  4. VENTOLIN HFA [Concomitant]
     Dosage: UNK
  5. ADVAIR [Concomitant]
     Dosage: 250/50, UNK, UNK
  6. IBUPROFEN [Concomitant]
     Dosage: 200 MG, UNK

REACTIONS (4)
  - Chronic obstructive pulmonary disease [Unknown]
  - Sinus congestion [Unknown]
  - Dyspnoea [Unknown]
  - Upper respiratory tract infection [Unknown]
